FAERS Safety Report 23874952 (Version 3)
Quarter: 2025Q2

REPORT INFORMATION
  Report Type: Spontaneous
  Country: CN (occurrence: CN)
  Receive Date: 20240520
  Receipt Date: 20250506
  Transmission Date: 20250716
  Serious: Yes (Other)
  Sender: PFIZER
  Company Number: CN-PFIZER INC-PV202400064401

PATIENT
  Age: 62 Year
  Sex: Male
  Weight: 74 kg

DRUGS (6)
  1. IRINOTECAN HYDROCHLORIDE [Suspect]
     Active Substance: IRINOTECAN HYDROCHLORIDE
     Indication: Colon cancer
     Dosage: 200 MG, 1X/DAY
     Route: 041
     Dates: start: 20240415, end: 20240415
  2. CISPLATIN [Suspect]
     Active Substance: CISPLATIN
     Indication: Colon cancer
     Dosage: 700 MG, 1X/DAY
     Route: 042
     Dates: start: 20240415, end: 20240415
  3. CISPLATIN [Suspect]
     Active Substance: CISPLATIN
     Dosage: 4000 MG, ALTERNATE DAY
     Route: 041
     Dates: start: 20240415, end: 20240417
  4. ERBITUX [Suspect]
     Active Substance: CETUXIMAB
     Indication: Colon cancer
     Dosage: 500 MG, 1X/DAY
     Route: 041
     Dates: start: 20240415, end: 20240415
  5. LEUCOVORIN CALCIUM [Concomitant]
     Active Substance: LEUCOVORIN CALCIUM
     Route: 042
  6. FLUOROURACIL [Concomitant]
     Active Substance: FLUOROURACIL

REACTIONS (1)
  - Hepatic function abnormal [Recovering/Resolving]

NARRATIVE: CASE EVENT DATE: 20240429
